FAERS Safety Report 15225932 (Version 1)
Quarter: 2018Q3

REPORT INFORMATION
  Report Type: Spontaneous
  Country: BE (occurrence: BE)
  Receive Date: 20180706
  Receipt Date: 20180706
  Transmission Date: 20181010
  Serious: Yes (Hospitalization)
  Sender: FDA-Public Use
  Company Number: None

PATIENT
  Age: 43 Year
  Sex: Male
  Weight: 100 kg

DRUGS (3)
  1. IFOSFAMIDE. [Suspect]
     Active Substance: IFOSFAMIDE
     Dates: end: 20180623
  2. TAXOL [Suspect]
     Active Substance: PACLITAXEL
     Dates: end: 20180621
  3. G?CSF (FILGRASTIM, AMGEN) [Suspect]
     Active Substance: FILGRASTIM
     Dates: end: 20180610

REACTIONS (5)
  - Mucosal inflammation [None]
  - Platelet count decreased [None]
  - Haemoglobin decreased [None]
  - Leukopenia [None]
  - Asthenia [None]

NARRATIVE: CASE EVENT DATE: 20180629
